FAERS Safety Report 21414542 (Version 1)
Quarter: 2022Q4

REPORT INFORMATION
  Report Type: Spontaneous
  Country: US (occurrence: US)
  Receive Date: 20221006
  Receipt Date: 20221006
  Transmission Date: 20230113
  Serious: No
  Sender: FDA-Public Use
  Company Number: US-TEVA-2022-US-2076603

PATIENT

DRUGS (1)
  1. CLONAZEPAM [Suspect]
     Active Substance: CLONAZEPAM
     Indication: Anxiety
     Route: 065

REACTIONS (5)
  - Hypertension [Unknown]
  - Cardiac disorder [Unknown]
  - Headache [Unknown]
  - Feeling abnormal [Unknown]
  - Product use in unapproved indication [Unknown]
